FAERS Safety Report 9297626 (Version 2)
Quarter: 2013Q2

REPORT INFORMATION
  Report Type: Spontaneous
  Country: US (occurrence: US)
  Receive Date: 20130520
  Receipt Date: 20130619
  Transmission Date: 20140414
  Serious: Yes (Hospitalization)
  Sender: FDA-Public Use
  Company Number: US-PFIZER INC-2013153233

PATIENT
  Age: 61 Year
  Sex: Male
  Weight: 79.37 kg

DRUGS (14)
  1. LYRICA [Suspect]
     Dosage: 150 MG, 2X/DAY
     Route: 048
     Dates: start: 2012
  2. METOPROLOL [Concomitant]
     Dosage: UNKNOWN DOSE BY SPLITTING 25MG TABLET DAILY
     Route: 048
  3. RASAGILINE MESILATE [Concomitant]
     Dosage: 1 MG, DAILY
     Route: 048
  4. BROMOCRYPTINE MESYLATE [Concomitant]
     Dosage: 2.5 MG, DAILY
     Route: 048
  5. DARIFENACIN HYDROBROMIDE [Concomitant]
     Dosage: 15 MG, DAILY
     Route: 048
  6. TESTOSTERONE CIPIONATE [Concomitant]
     Dosage: UNK, EVERY 28 DAYS
     Route: 030
  7. CLONIDINE HYDROCHLORIDE [Concomitant]
     Dosage: 0.1 MG, 2X/DAY
     Route: 048
  8. TAMSULOSIN HYDROCHLORIDE [Concomitant]
     Dosage: 0.4 MG, 2X/DAY
     Route: 048
  9. AMANTADINE HYDROCHLORIDE [Concomitant]
     Dosage: 100 MG, 3X/DAY
     Route: 048
  10. ROPINIROLE HYDROCHLORIDE [Concomitant]
     Dosage: 1 MG, 3X/DAY
     Route: 048
  11. TRIHEXYPHENIDYL HYDROCHLORIDE [Concomitant]
     Dosage: 2 MG, 3X/DAY
     Route: 048
  12. LEVODOPA-CARBIDOPA [Concomitant]
     Dosage: LEVODOPA(100)/ CARBIDOPA (25), 5X/DAY
     Route: 048
  13. DULOXETINE HYDROCHLORIDE [Concomitant]
     Dosage: 60 MG, 3X/DAY
     Route: 048
  14. TRAZODONE HYDROCHLORIDE [Concomitant]
     Dosage: 150 MG, 1X/DAY
     Route: 048

REACTIONS (2)
  - Hypertension [Unknown]
  - Amnesia [Unknown]
